FAERS Safety Report 18189286 (Version 2)
Quarter: 2020Q3

REPORT INFORMATION
  Report Type: Spontaneous
  Country: JP (occurrence: JP)
  Receive Date: 20200824
  Receipt Date: 20200916
  Transmission Date: 20201103
  Serious: Yes (Hospitalization)
  Sender: FDA-Public Use
  Company Number: JP-OTSUKA-2020_020050

PATIENT
  Age: 7 Decade
  Sex: Female

DRUGS (1)
  1. ABILIFY [Suspect]
     Active Substance: ARIPIPRAZOLE
     Indication: PSYCHIATRIC SYMPTOM
     Dosage: UNK
     Route: 048

REACTIONS (4)
  - Tremor [Not Recovered/Not Resolved]
  - Injury [Unknown]
  - Hypoglycaemia [Unknown]
  - Product use in unapproved indication [Unknown]
